FAERS Safety Report 16472846 (Version 1)
Quarter: 2019Q2

REPORT INFORMATION
  Report Type: Spontaneous
  Country: US (occurrence: US)
  Receive Date: 20190625
  Receipt Date: 20190625
  Transmission Date: 20190711
  Serious: No
  Sender: FDA-Public Use
  Company Number: US-TEVA-2019-US-1062947

PATIENT
  Sex: Male

DRUGS (7)
  1. ACYCLOVIR. [Concomitant]
     Active Substance: ACYCLOVIR
     Route: 065
  2. ATIVAN [Concomitant]
     Active Substance: LORAZEPAM
     Route: 065
  3. PHOSLO [Concomitant]
     Active Substance: CALCIUM ACETATE
     Route: 065
  4. SYNRIBO [Suspect]
     Active Substance: OMACETAXINE MEPESUCCINATE
     Indication: CHRONIC MYELOID LEUKAEMIA
     Dosage: 2.5MG/0.71ML
     Route: 065
     Dates: start: 20190529
  5. ALLOPURINOL. [Concomitant]
     Active Substance: ALLOPURINOL
     Route: 065
  6. TRAMADOL. [Concomitant]
     Active Substance: TRAMADOL
     Route: 065
  7. DILAUDID [Concomitant]
     Active Substance: HYDROMORPHONE HYDROCHLORIDE
     Route: 065

REACTIONS (2)
  - Injection site pain [Unknown]
  - Fatigue [Unknown]
